FAERS Safety Report 17427854 (Version 1)
Quarter: 2020Q1

REPORT INFORMATION
  Report Type: Spontaneous
  Country: CN (occurrence: CN)
  Receive Date: 20200217
  Receipt Date: 20200217
  Transmission Date: 20200409
  Serious: Yes (Life-Threatening, Other)
  Sender: FDA-Public Use
  Company Number: CN-ABBVIE-20K-035-3276760-00

PATIENT
  Age: 50 Year
  Sex: Male
  Weight: 68.5 kg

DRUGS (2)
  1. ALUVIA 200/50 [Suspect]
     Active Substance: LOPINAVIR\RITONAVIR
     Indication: CORONA VIRUS INFECTION
  2. ALUVIA 200/50 [Suspect]
     Active Substance: LOPINAVIR\RITONAVIR
     Indication: PNEUMONIA
     Route: 048
     Dates: start: 20200123, end: 20200204

REACTIONS (14)
  - Hepatic function abnormal [Recovering/Resolving]
  - Off label use [Unknown]
  - Syncope [Recovering/Resolving]
  - Cold sweat [Recovering/Resolving]
  - Oxygen saturation decreased [Recovering/Resolving]
  - Vomiting [Recovering/Resolving]
  - Hypertriglyceridaemia [Recovering/Resolving]
  - Anal incontinence [Recovering/Resolving]
  - Chest discomfort [Recovering/Resolving]
  - Muscle tightness [Unknown]
  - Blood pressure decreased [Recovering/Resolving]
  - Dizziness [Recovering/Resolving]
  - Nausea [Recovering/Resolving]
  - Urinary incontinence [Recovering/Resolving]

NARRATIVE: CASE EVENT DATE: 20200123
